FAERS Safety Report 5796828-6 (Version None)
Quarter: 2008Q3

REPORT INFORMATION
  Report Type: 
  Country: None (occurrence: None)
  Receive Date: 20080701
  Receipt Date: 20080623
  Transmission Date: 20090109
  Serious: Yes (Death)
  Sender: FDA-Public Use
  Company Number: MX-NOVOPROD-274434

PATIENT
  Age: 62 Year
  Sex: Female
  Weight: 46 kg

DRUGS (7)
  1. LEVEMIR [Suspect]
     Indication: DIABETES MELLITUS
     Dates: start: 20071206, end: 20071226
  2. OMEPRAZOL                          /00661201/ [Concomitant]
     Dosage: 20 MG, QD
     Route: 048
  3. METAMIZOL                          /00039501/ [Concomitant]
     Dosage: 500 MG, QD
     Route: 048
  4. ASCORBIC ACID [Concomitant]
     Dosage: 18 UNK, QD
     Route: 048
  5. LEVOCARNITINE [Concomitant]
     Dosage: 18 UNK, QD
     Route: 048
  6. COBAMINE                           /00056201/ [Concomitant]
     Dosage: 1 MG, QD
     Route: 048
  7. NANDROLONE DECANOATE [Suspect]
     Dosage: 50 MG, UNK
     Route: 030

REACTIONS (1)
  - CARDIAC FAILURE [None]
